FAERS Safety Report 15450024 (Version 1)
Quarter: 2018Q4

REPORT INFORMATION
  Report Type: Spontaneous
  Country: US (occurrence: US)
  Receive Date: 20181001
  Receipt Date: 20181001
  Transmission Date: 20190204
  Serious: No
  Sender: FDA-Public Use
  Company Number: US-PFIZER INC-2017107518

PATIENT
  Age: 53 Year
  Sex: Female

DRUGS (38)
  1. TIZANIDINE. [Concomitant]
     Active Substance: TIZANIDINE
     Indication: MUSCLE SPASMS
     Dosage: 4 MG, AS NEEDED
     Route: 048
  2. CEPHALEXIN. [Concomitant]
     Active Substance: CEPHALEXIN
     Dosage: 500 MG, UNK
  3. DIPHENOXYLATE-ATROPINE [Concomitant]
     Active Substance: ATROPINE\DIPHENOXYLATE
     Dosage: 1 DF, AS NEEDED [[DIPHENOXYLATE HYDROCHLORIDE 2.5 MG]/[ATROPINE SULFATE 0.025 MG]/ TK 1 T PO SIX TIM
     Route: 048
  4. METOPROLOL. [Concomitant]
     Active Substance: METOPROLOL
     Indication: MIGRAINE
  5. VOLTAREN XL [Concomitant]
     Indication: INFLAMMATION
  6. LYRICA [Suspect]
     Active Substance: PREGABALIN
     Indication: FIBROMYALGIA
     Dosage: 75 MG, 2X/DAY(EVERY 12 HRS/ 90 DAYS)
     Route: 048
  7. LYRICA [Suspect]
     Active Substance: PREGABALIN
     Indication: CERVICAL RADICULOPATHY
  8. OXYCODONE [Concomitant]
     Active Substance: OXYCODONE
     Indication: BREAKTHROUGH PAIN
     Dosage: 5 MG, AS NEEDED (1/2 TAB AS NEEDED 3 TIMES/DAY)
     Route: 048
  9. DEPO-MEDROL [Concomitant]
     Active Substance: METHYLPREDNISOLONE ACETATE
     Dosage: 1 ML, UNK
  10. BUTALBITAL, ACETAMINOPHEN, AND CAFFEINE [Concomitant]
     Active Substance: ACETAMINOPHEN\BUTALBITAL\CAFFEINE
     Indication: TENSION
     Dosage: 1 DF, AS NEEDED [BUTALBITAL 50 MG]/[ACETAMINOPHEN325 MG]/[CAFFEINE 40 MG] EVERY DAY AS NEEDED]
     Route: 048
  11. BUTALBITAL, ACETAMINOPHEN, AND CAFFEINE [Concomitant]
     Active Substance: ACETAMINOPHEN\BUTALBITAL\CAFFEINE
     Indication: MIGRAINE
  12. INTEGRA F [Concomitant]
     Active Substance: ASCORBIC ACID\FERROUS ASPARTO GLYCINATE\FERROUS FUMARATE\FOLIC ACID\NIACIN
     Indication: IRON DEFICIENCY ANAEMIA
     Dosage: 1 DF, 1X/DAY [125 MG-1 MG=40 MG-3 MG CAPSULE]
     Route: 048
  13. DOCUSATE SODIUM. [Concomitant]
     Active Substance: DOCUSATE SODIUM
     Indication: CONSTIPATION
     Dosage: 100 MG, 3X/DAY
  14. RANITIDINE. [Concomitant]
     Active Substance: RANITIDINE
     Dosage: 300 MG, 1X/DAY
     Route: 048
  15. CLINDAMYCIN. [Concomitant]
     Active Substance: CLINDAMYCIN
     Indication: ACNE
     Dosage: UNK, AS NEEDED (2 TIMES PER DAY PRN )
     Route: 061
  16. CEPHAZOLIN [Concomitant]
     Active Substance: CEFAZOLIN
     Indication: INFECTION
     Dosage: 500 MG, AS NEEDED [500 MG 1 CAPSULE EVERY 12 HRS AS NEEDED ]
  17. LANSOPRAZOLE. [Concomitant]
     Active Substance: LANSOPRAZOLE
     Indication: GASTROOESOPHAGEAL REFLUX DISEASE
     Dosage: 30 MG, 1X/DAY (EVERY MORNING)
     Route: 048
  18. LEVOTHYROXINE. [Concomitant]
     Active Substance: LEVOTHYROXINE
     Indication: HYPOTHYROIDISM
     Dosage: 25 UG, 1X/DAY [TK 1 T PO QD IN THE MORNING]
     Route: 048
  19. DEXAMETHASONE. [Concomitant]
     Active Substance: DEXAMETHASONE
     Dosage: 4 MG, UNK
  20. MORPHINE SULFATE. [Concomitant]
     Active Substance: MORPHINE SULFATE
     Indication: SPINAL PAIN
     Dosage: 30 MG, 3X/DAY
     Route: 048
  21. METOPROLOL. [Concomitant]
     Active Substance: METOPROLOL
     Indication: HYPERTENSION
     Dosage: 12.5 MG, 2X/DAY
  22. CYANOCOBALAMIN. [Concomitant]
     Active Substance: CYANOCOBALAMIN
     Indication: FATIGUE
     Dosage: 1 ML, AS NEEDED
     Route: 058
  23. LYRICA [Suspect]
     Active Substance: PREGABALIN
     Indication: MIGRAINE WITHOUT AURA
     Dosage: 150 MG, 2X/DAY
     Route: 048
  24. SERTRALINE [Concomitant]
     Active Substance: SERTRALINE HYDROCHLORIDE
     Indication: SEXUAL ABUSE
  25. HYALGAN [Concomitant]
     Active Substance: HYALURONATE SODIUM
     Dosage: 4 ML, UNK
     Route: 014
  26. CEPHAZOLIN [Concomitant]
     Active Substance: CEFAZOLIN
     Indication: ACNE
  27. ASTELIN [Concomitant]
     Active Substance: AZELASTINE HYDROCHLORIDE
     Indication: VASOMOTOR RHINITIS
  28. SERTRALINE [Concomitant]
     Active Substance: SERTRALINE HYDROCHLORIDE
     Indication: POST-TRAUMATIC STRESS DISORDER
     Dosage: 50 MG, 1X/DAY
     Route: 048
  29. AZELASTINE. [Concomitant]
     Active Substance: AZELASTINE HYDROCHLORIDE
     Dosage: 274 UG, 2X/DAY (SPRAY 2 SPRAYS 2 TIMES A DAY )
     Route: 045
  30. ASTELIN [Concomitant]
     Active Substance: AZELASTINE HYDROCHLORIDE
     Indication: HYPERSENSITIVITY
     Dosage: UNK UNK, AS NEEDED
     Route: 045
  31. VOLTAREN XL [Concomitant]
     Indication: PAIN
     Dosage: 100 MG, AS NEEDED [1 TAB EVERY 12-24 HRS PRN ]
  32. BETAMETHASONE, AUGMENTED [Concomitant]
     Indication: ARTHROPOD BITE
     Dosage: UNK, AS NEEDED (EVERY 12 HRS PRN)
     Route: 061
  33. CYANOCOBALAMIN. [Concomitant]
     Active Substance: CYANOCOBALAMIN
     Indication: MUSCULAR WEAKNESS
  34. CYANOCOBALAMIN. [Concomitant]
     Active Substance: CYANOCOBALAMIN
     Indication: VITAMIN B12 DECREASED
  35. RED YEAST RICE [Concomitant]
     Active Substance: DIETARY SUPPLEMENT
     Dosage: UNK UNK, 2X/DAY
  36. BETAMETHASONE, AUGMENTED [Concomitant]
     Indication: RASH
  37. CLOBETASOL [Concomitant]
     Active Substance: CLOBETASOL
     Indication: LICHEN SCLEROSUS
     Dosage: UNK [0.05 % SMALL AMT 2-3 TIMES/WK ]
  38. KETOROLAC [Concomitant]
     Active Substance: KETOROLAC\KETOROLAC TROMETHAMINE
     Indication: MIGRAINE
     Dosage: 2 ML, AS NEEDED
     Route: 030

REACTIONS (2)
  - Cervical radiculopathy [Not Recovered/Not Resolved]
  - Condition aggravated [Not Recovered/Not Resolved]
